FAERS Safety Report 7680865-0 (Version None)
Quarter: 2011Q3

REPORT INFORMATION
  Report Type: 
  Country: None (occurrence: None)
  Receive Date: 20110812
  Receipt Date: 20110809
  Transmission Date: 20111222
  Serious: Yes (Disabling, Other)
  Sender: FDA-Public Use
  Company Number: GB-MERCK-1108GBR00055

PATIENT
  Age: 60 Year
  Weight: 84 kg

DRUGS (1)
  1. JANUVIA [Suspect]
     Indication: DIABETES MELLITUS
     Route: 048
     Dates: start: 20100830, end: 20110728

REACTIONS (1)
  - LOWER RESPIRATORY TRACT INFECTION [None]
